FAERS Safety Report 9415516 (Version 5)
Quarter: 2014Q4

REPORT INFORMATION
  Report Type: Spontaneous
  Country: US (occurrence: US)
  Receive Date: 20130723
  Receipt Date: 20141014
  Transmission Date: 20150529
  Serious: Yes (Hospitalization)
  Sender: FDA-Public Use
  Company Number: US-B.I. PHARMACEUTICALS,INC./RIDGEFIELD-2013-BI-21645BP

PATIENT
  Age: 68 Year
  Sex: Female
  Weight: 77.11 kg

DRUGS (1)
  1. PRADAXA [Suspect]
     Active Substance: DABIGATRAN ETEXILATE MESYLATE
     Indication: ATRIAL FIBRILLATION
     Dosage: 300 MG
     Route: 048
     Dates: start: 20101110, end: 201206

REACTIONS (7)
  - Haematoma [Unknown]
  - Sepsis [Not Recovered/Not Resolved]
  - Haemorrhage [Unknown]
  - Urinary tract infection [Unknown]
  - Multiple-drug resistance [Unknown]
  - Hypothyroidism [Unknown]
  - Ecchymosis [Unknown]

NARRATIVE: CASE EVENT DATE: 201206
